FAERS Safety Report 8984259 (Version 1)
Quarter: 2012Q4

REPORT INFORMATION
  Report Type: Spontaneous
  Country: GB (occurrence: None)
  Receive Date: 20121212
  Receipt Date: 20121212
  Transmission Date: 20130627
  Serious: Yes (Other)
  Sender: FDA-Public Use
  Company Number: 2012MA013909

PATIENT
  Age: 16 Year
  Sex: Female

DRUGS (1)
  1. FLUOXETINE [Suspect]
     Indication: PERSONALITY DISORDER
     Route: 048
     Dates: start: 20121106, end: 20121115

REACTIONS (2)
  - Unresponsive to stimuli [None]
  - Hallucination, visual [None]
